FAERS Safety Report 9407037 (Version 3)
Quarter: 2014Q2

REPORT INFORMATION
  Report Type: Report from Study
  Country: US (occurrence: US)
  Receive Date: 20130718
  Receipt Date: 20140401
  Transmission Date: 20141212
  Serious: Yes (Hospitalization)
  Sender: FDA-Public Use
  Company Number: US-ALEXION-A201301610

PATIENT
  Age: 23 Year
  Sex: Female

DRUGS (15)
  1. ECULIZUMAB [Suspect]
     Indication: HAEMOLYTIC URAEMIC SYNDROME
     Dosage: UNK
     Route: 042
  2. SENSIPAR [Concomitant]
     Dosage: 30 MG, QOD
     Route: 048
  3. CELEXA [Concomitant]
     Dosage: 30 MG, QD
     Route: 048
  4. PREDNISONE [Concomitant]
     Dosage: 10 MG, QD
     Route: 048
  5. MYCOPHENOLATE MOFETIL [Concomitant]
     Dosage: 500 MG, BID Q 12 HOUR
     Route: 048
  6. PROGRAF [Concomitant]
     Dosage: 2 MG, BID Q 12 HOUR
     Route: 048
  7. CLONIDINE [Concomitant]
     Dosage: 0.2 MG, TID
     Route: 048
  8. COREG [Concomitant]
     Dosage: 25 MG, BID
     Route: 048
  9. CARDIZEM [Concomitant]
     Dosage: 360 MG, QD EXTENDED RELEASE
     Route: 048
  10. MINOXIDIL [Concomitant]
     Dosage: 5 MG, BID
     Route: 048
  11. REGLAN [Concomitant]
     Dosage: 10 MG, TID BEFORE MEALS
     Route: 048
  12. AMBIEN [Concomitant]
     Dosage: 10 MG, QD AT BEDTIME
     Route: 048
  13. OMEPRAZOLE [Concomitant]
     Dosage: 20 MG, BID
     Route: 048
  14. VALCYTE [Concomitant]
     Dosage: 450 MG, QOD
     Route: 048
  15. VALSARTAN [Concomitant]
     Dosage: 160 MG, BID
     Route: 048

REACTIONS (1)
  - Gastrointestinal haemorrhage [Recovered/Resolved]
